FAERS Safety Report 11270021 (Version 4)
Quarter: 2022Q3

REPORT INFORMATION
  Report Type: Spontaneous
  Country: CA (occurrence: CA)
  Receive Date: 20150714
  Receipt Date: 20220713
  Transmission Date: 20221026
  Serious: Yes (Death, Hospitalization, Other)
  Sender: FDA-Public Use
  Company Number: US-GLAXOSMITHKLINE INC.-US2015GSK100759

PATIENT

DRUGS (2)
  1. AVANDIA [Suspect]
     Active Substance: ROSIGLITAZONE MALEATE
     Indication: Diabetes mellitus
     Dosage: 4 MG, QD
     Route: 048
     Dates: start: 20010510, end: 20080609
  2. AVANDAMET [Suspect]
     Active Substance: METFORMIN HYDROCHLORIDE\ROSIGLITAZONE MALEATE
     Indication: Diabetes mellitus
     Dosage: 500 MG/2 MG
     Route: 048
     Dates: start: 20040315, end: 20080906

REACTIONS (13)
  - Death [Fatal]
  - Acute coronary syndrome [Unknown]
  - Cardiac failure congestive [Unknown]
  - Atrial flutter [Unknown]
  - Myocardial infarction [Unknown]
  - Atrioventricular block [Unknown]
  - Cardiac disorder [Unknown]
  - Coronary artery bypass [Unknown]
  - Cardiac ablation [Unknown]
  - Cardiac pacemaker insertion [Unknown]
  - Coronary artery disease [Unknown]
  - Angioplasty [Unknown]
  - Atrioventricular block [Unknown]
